FAERS Safety Report 10786583 (Version 1)
Quarter: 2015Q1

REPORT INFORMATION
  Report Type: Spontaneous
  Country: US (occurrence: None)
  Receive Date: 20150210
  Receipt Date: 20150210
  Transmission Date: 20150721
  Serious: Yes (Disabling)
  Sender: FDA-Public Use
  Company Number: None

PATIENT
  Age: 52 Year
  Sex: Female
  Weight: 74.84 kg

DRUGS (1)
  1. CIPROFLOXACIN 500MG BAYER [Suspect]
     Active Substance: CIPROFLOXACIN
     Indication: POSTOPERATIVE CARE
     Dosage: 1 PILL TWICE DAILY TAKEN BY MOUTH
     Route: 048
     Dates: start: 20140718, end: 20140725

REACTIONS (4)
  - Activities of daily living impaired [None]
  - Arthralgia [None]
  - Tendonitis [None]
  - Urinary tract infection [None]

NARRATIVE: CASE EVENT DATE: 20140915
